FAERS Safety Report 7815012-5 (Version None)
Quarter: 2011Q4

REPORT INFORMATION
  Report Type: 
  Country: None (occurrence: None)
  Receive Date: 20111014
  Receipt Date: 20110727
  Transmission Date: 20120403
  Serious: Yes (Other)
  Sender: FDA-Public Use
  Company Number: NG-GLAXOSMITHKLINE-B0753877A

PATIENT

DRUGS (1)
  1. CEFTAZIDIME SODIUM [Suspect]
     Indication: KLEBSIELLA INFECTION
     Route: 065

REACTIONS (1)
  - PATHOGEN RESISTANCE [None]
